FAERS Safety Report 20598684 (Version 1)
Quarter: 2022Q1

REPORT INFORMATION
  Report Type: Spontaneous
  Country: HU (occurrence: HU)
  Receive Date: 20220315
  Receipt Date: 20220315
  Transmission Date: 20220424
  Serious: Yes (Other)
  Sender: FDA-Public Use
  Company Number: HU-002147023-NVSC2022HU019041

PATIENT
  Age: 74 Year
  Sex: Female

DRUGS (9)
  1. FLUOROURACIL [Suspect]
     Active Substance: FLUOROURACIL
     Indication: Carcinoma in situ
     Dosage: UNK
     Route: 065
  2. EPIRUBICIN [Suspect]
     Active Substance: EPIRUBICIN
     Indication: Carcinoma in situ
     Dosage: UNK
     Route: 065
  3. FULVESTRANT [Suspect]
     Active Substance: FULVESTRANT
     Indication: Metastasis
     Dosage: UNK
     Route: 065
     Dates: start: 202105
  4. CYCLOPHOSPHAMIDE [Suspect]
     Active Substance: CYCLOPHOSPHAMIDE
     Indication: Carcinoma in situ
     Dosage: UNK
     Route: 065
  5. KISQALI [Suspect]
     Active Substance: RIBOCICLIB
     Indication: Metastasis
     Dosage: UNK
     Route: 065
  6. TAMOXIFEN [Concomitant]
     Active Substance: TAMOXIFEN
     Indication: Carcinoma in situ
     Dosage: UNK
     Route: 065
  7. ANASTROZOLE [Concomitant]
     Active Substance: ANASTROZOLE
     Indication: Carcinoma in situ
     Dosage: UNK
     Route: 065
  8. TELVIRAN [Concomitant]
     Indication: Product used for unknown indication
     Dosage: 400 MILLIGRAM, 400 MG, 2X FOR 3 DAYS WEEKLY (FRIDAY-SATURDAY-SUNDAY)
     Route: 065
  9. SULFAMETHOXAZOLE\TRIMETHOPRIM [Concomitant]
     Active Substance: SULFAMETHOXAZOLE\TRIMETHOPRIM
     Indication: Product used for unknown indication
     Dosage: UNK, 2X
     Route: 065

REACTIONS (4)
  - Herpes zoster [Unknown]
  - Breast cancer metastatic [Unknown]
  - Haemorrhage [Unknown]
  - Neutropenia [Unknown]
